FAERS Safety Report 6659907-7 (Version None)
Quarter: 2010Q1

REPORT INFORMATION
  Report Type: 
  Country: None (occurrence: None)
  Receive Date: 20100330
  Receipt Date: 20100330
  Transmission Date: 20100710
  Serious: Yes (Other)
  Sender: FDA-Public Use
  Company Number: None

PATIENT
  Age: 8 Year
  Sex: Male
  Weight: 26.3086 kg

DRUGS (2)
  1. SINGULAIR [Suspect]
     Indication: ASTHMA
     Dosage: 5 MG ONCE A DAY PO
     Route: 048
     Dates: start: 20090202, end: 20100326
  2. SINGULAIR [Suspect]
     Indication: HYPERSENSITIVITY
     Dosage: 5 MG ONCE A DAY PO
     Route: 048
     Dates: start: 20090202, end: 20100326

REACTIONS (3)
  - ANGER [None]
  - DEPRESSION [None]
  - FRUSTRATION [None]
